FAERS Safety Report 23462330 (Version 1)
Quarter: 2024Q1

REPORT INFORMATION
  Report Type: Spontaneous
  Country: US (occurrence: US)
  Receive Date: 20240131
  Receipt Date: 20240131
  Transmission Date: 20240410
  Serious: Yes (Hospitalization, Other)
  Sender: FDA-Public Use
  Company Number: US-PFIZER INC-202400024959

PATIENT
  Age: 49 Year
  Sex: Male
  Weight: 99.79 kg

DRUGS (2)
  1. CYTARABINE [Suspect]
     Active Substance: CYTARABINE
     Indication: Neoplasm malignant
     Dosage: UNK, 2X/WEEK
     Dates: start: 202303, end: 20230327
  2. VINCRISTINE SULFATE [Suspect]
     Active Substance: VINCRISTINE SULFATE
     Indication: Neoplasm malignant
     Dosage: UNK, 2X/WEEK
     Dates: start: 202303, end: 20230327

REACTIONS (8)
  - Paralysis [Not Recovered/Not Resolved]
  - Bone marrow transplant [Unknown]
  - Abdominal discomfort [Unknown]
  - Gastrointestinal disorder [Unknown]
  - Malaise [Unknown]
  - Weight decreased [Unknown]
  - Hypoaesthesia [Unknown]
  - Muscular weakness [Unknown]

NARRATIVE: CASE EVENT DATE: 20230101
